FAERS Safety Report 24294964 (Version 1)
Quarter: 2024Q3

REPORT INFORMATION
  Report Type: Spontaneous
  Country: GB (occurrence: GB)
  Receive Date: 20240907
  Receipt Date: 20240907
  Transmission Date: 20241016
  Serious: Yes (Other)
  Sender: TEVA
  Company Number: GB-MHRA-TPP8159406C6591870YC1724762728101

PATIENT
  Age: 58 Year
  Sex: Male
  Weight: 104 kg

DRUGS (10)
  1. ALLOPURINOL [Suspect]
     Active Substance: ALLOPURINOL
     Indication: Gout
     Route: 065
     Dates: start: 20240515
  2. RYBELSUS [Concomitant]
     Active Substance: SEMAGLUTIDE
     Indication: Diabetes mellitus
     Dosage: TO HELP CONTROL DIABET...
     Dates: start: 20240515
  3. FOLIC ACID [Concomitant]
     Active Substance: FOLIC ACID
     Dates: start: 20240515
  4. METFORMIN [Concomitant]
     Active Substance: METFORMIN HYDROCHLORIDE
     Indication: Diabetes mellitus
     Dates: start: 20240613, end: 20240813
  5. COLCHICINE [Concomitant]
     Active Substance: COLCHICINE
     Dates: start: 20240515, end: 20240827
  6. LANSOPRAZOLE [Concomitant]
     Active Substance: LANSOPRAZOLE
     Dosage: TO HELP PREVENT IND...
     Dates: start: 20240515
  7. CANDESARTAN [Concomitant]
     Active Substance: CANDESARTAN
     Dates: start: 20240515
  8. CLOPIDOGREL [Concomitant]
     Active Substance: CLOPIDOGREL BISULFATE
     Dosage: TO HELP PREVENT HEART ...,
     Dates: start: 20240424
  9. ATORVASTATIN [Concomitant]
     Active Substance: ATORVASTATIN
     Indication: Blood cholesterol increased
     Dates: start: 20240424
  10. NAPROXEN [Concomitant]
     Active Substance: NAPROXEN
     Indication: Pain
     Dosage: WITH FOOD.,
     Dates: start: 20240619, end: 20240703

REACTIONS (2)
  - Rash [Recovering/Resolving]
  - Skin reaction [Recovering/Resolving]
